FAERS Safety Report 7483416-9 (Version None)
Quarter: 2011Q2

REPORT INFORMATION
  Report Type: 
  Country: None (occurrence: None)
  Receive Date: 20110509
  Receipt Date: 20110425
  Transmission Date: 20111010
  Serious: Yes (Death)
  Sender: FDA-Public Use
  Company Number: 2011P1006233

PATIENT
  Age: 53 Year
  Sex: Male

DRUGS (1)
  1. FENTANYL [Suspect]
     Indication: PAIN

REACTIONS (3)
  - UNRESPONSIVE TO STIMULI [None]
  - DRUG EFFECT INCREASED [None]
  - OVERDOSE [None]
